FAERS Safety Report 13680449 (Version 1)
Quarter: 2017Q2

REPORT INFORMATION
  Report Type: Spontaneous
  Country: CN (occurrence: CN)
  Receive Date: 20170623
  Receipt Date: 20170623
  Transmission Date: 20170830
  Serious: Yes (Other)
  Sender: FDA-Public Use
  Company Number: CN-009507513-1706CHN006669

PATIENT
  Age: 88 Year
  Sex: Female
  Weight: 32 kg

DRUGS (2)
  1. TIENAM [Suspect]
     Active Substance: CILASTATIN SODIUM\IMIPENEM
     Indication: BACTERIAL INFECTION
     Dosage: 1 G, BID
     Route: 041
     Dates: start: 20170408, end: 20170409
  2. SODIUM CHLORIDE. [Concomitant]
     Active Substance: SODIUM CHLORIDE
     Dosage: INDICATION: DRUG SOLVENT; 100 ML, BID
     Route: 041
     Dates: start: 20170408, end: 20170409

REACTIONS (2)
  - Chills [Recovered/Resolved]
  - Tachycardia [Recovered/Resolved]

NARRATIVE: CASE EVENT DATE: 20170409
